FAERS Safety Report 20165305 (Version 4)
Quarter: 2022Q1

REPORT INFORMATION
  Report Type: Report from Study
  Country: FR (occurrence: None)
  Receive Date: 20211209
  Receipt Date: 20220324
  Transmission Date: 20220423
  Serious: Yes (Hospitalization)
  Sender: FDA-Public Use
  Company Number: FR-ROCHE-2956743

PATIENT
  Age: 58 Year
  Sex: Male
  Weight: 62.6 kg

DRUGS (10)
  1. CABOZANTINIB [Suspect]
     Active Substance: CABOZANTINIB
     Indication: Neoplasm
     Dosage: ON 20/OCT/2021, THE PATIENT RECEIVED THE MOST RECENT DOSE OF XL184 PRIOR TO THE EVENT.
     Route: 048
     Dates: start: 20210309, end: 20211105
  2. CABOZANTINIB [Suspect]
     Active Substance: CABOZANTINIB
     Indication: Hormone-refractory prostate cancer
  3. ATEZOLIZUMAB [Suspect]
     Active Substance: ATEZOLIZUMAB
     Indication: Neoplasm
     Dosage: ON 06/OCT/2021, THE PATIENT RECEIVED THE MOST RECENT DOSE OF ATEZOLIZUMAB PRIOR TO THE EVENT
     Route: 042
     Dates: start: 20210309, end: 20211105
  4. ATEZOLIZUMAB [Suspect]
     Active Substance: ATEZOLIZUMAB
     Indication: Hormone-refractory prostate cancer
  5. FENTANYL [Concomitant]
     Active Substance: FENTANYL
  6. MORPHINE SULFATE [Concomitant]
     Active Substance: MORPHINE SULFATE
  7. ACETAMINOPHEN [Concomitant]
     Active Substance: ACETAMINOPHEN
  8. VOGALENE [Concomitant]
     Active Substance: METOPIMAZINE
  9. PRIMPERAN [Concomitant]
     Active Substance: METOCLOPRAMIDE HYDROCHLORIDE
  10. AERIUS [Concomitant]

REACTIONS (2)
  - Septic shock [Recovered/Resolved]
  - Cardiac failure [Recovered/Resolved]

NARRATIVE: CASE EVENT DATE: 20211020
